FAERS Safety Report 7590129-1 (Version None)
Quarter: 2011Q3

REPORT INFORMATION
  Report Type: 
  Country: None (occurrence: None)
  Receive Date: 20110705
  Receipt Date: 20110623
  Transmission Date: 20111222
  Serious: Yes (Other)
  Sender: FDA-Public Use
  Company Number: B0730321A

PATIENT

DRUGS (3)
  1. VENTOLIN HFA [Suspect]
     Route: 055
  2. SALAMOL [Suspect]
     Route: 055
  3. BECLOMETHASONE DIPROPIONATE [Suspect]
     Route: 055

REACTIONS (2)
  - WHEEZING [None]
  - ANAPHYLACTIC SHOCK [None]
